FAERS Safety Report 16523847 (Version 1)
Quarter: 2019Q3

REPORT INFORMATION
  Report Type: Spontaneous
  Country: US (occurrence: US)
  Receive Date: 20190703
  Receipt Date: 20190703
  Transmission Date: 20191004
  Serious: Yes (Hospitalization)
  Sender: FDA-Public Use
  Company Number: US-BRISTOL-MYERS SQUIBB COMPANY-BMS-2019-060851

PATIENT
  Age: 41 Year
  Sex: Male

DRUGS (1)
  1. COUMADIN [Suspect]
     Active Substance: WARFARIN SODIUM
     Indication: PULMONARY EMBOLISM
     Dosage: UNAVAILABLE
     Route: 065

REACTIONS (2)
  - International normalised ratio increased [Unknown]
  - Coagulopathy [Unknown]

NARRATIVE: CASE EVENT DATE: 20190620
